FAERS Safety Report 17262364 (Version 2)
Quarter: 2020Q1

REPORT INFORMATION
  Report Type: Spontaneous
  Country: US (occurrence: US)
  Receive Date: 20200113
  Receipt Date: 20200114
  Transmission Date: 20200409
  Serious: No
  Sender: FDA-Public Use
  Company Number: US-PFIZER INC-2019113851

PATIENT
  Age: 56 Year
  Sex: Female
  Weight: 95.71 kg

DRUGS (4)
  1. MENEST [Suspect]
     Active Substance: ESTROGENS, ESTERIFIED
     Indication: MENOPAUSAL SYMPTOMS
  2. MENEST [Suspect]
     Active Substance: ESTROGENS, ESTERIFIED
     Indication: MENOPAUSAL SYMPTOMS
     Dosage: 0.625 MG, DAILY, [TAKE 1 TABLET(S) EVERY DAY]
     Route: 048
  3. MENEST [Suspect]
     Active Substance: ESTROGENS, ESTERIFIED
     Indication: OVARIAN FAILURE POSTOPERATIVE
     Dosage: UNK, 1X/DAY(0.0625 ONCE A DAY)
  4. MENEST [Suspect]
     Active Substance: ESTROGENS, ESTERIFIED
     Indication: HYSTERECTOMY

REACTIONS (3)
  - Product use issue [Unknown]
  - Off label use [Unknown]
  - Depression [Unknown]
